FAERS Safety Report 12582576 (Version 1)
Quarter: 2016Q3

REPORT INFORMATION
  Report Type: Spontaneous
  Country: CN (occurrence: CN)
  Receive Date: 20160722
  Receipt Date: 20160722
  Transmission Date: 20161109
  Serious: Yes (Other)
  Sender: FDA-Public Use
  Company Number: PHHY2016CN099992

PATIENT
  Age: 53 Year
  Sex: Male
  Weight: 82 kg

DRUGS (1)
  1. TEGRETOL [Suspect]
     Active Substance: CARBAMAZEPINE
     Indication: TRIGEMINAL NEURALGIA
     Dosage: 1 DF, BID
     Route: 048
     Dates: start: 20160318, end: 20160318

REACTIONS (4)
  - Lip ulceration [Recovering/Resolving]
  - Dizziness [Recovering/Resolving]
  - Pruritus [Recovering/Resolving]
  - Scab [Recovering/Resolving]

NARRATIVE: CASE EVENT DATE: 20160318
